FAERS Safety Report 6107186-1 (Version None)
Quarter: 2009Q1

REPORT INFORMATION
  Report Type: 
  Country: None (occurrence: None)
  Receive Date: 20090305
  Receipt Date: 20090305
  Transmission Date: 20090719
  Serious: Yes (Hospitalization)
  Sender: FDA-Public Use
  Company Number: None

PATIENT
  Sex: Male
  Weight: 73.0291 kg

DRUGS (11)
  1. RITUXAN [Suspect]
     Indication: B-CELL LYMPHOMA
     Dosage: 712.5 MG EVERY 2 WEEKS IVPB
     Route: 042
     Dates: start: 20081222, end: 20090217
  2. CYTOXAN [Suspect]
     Indication: B-CELL LYMPHOMA
     Dosage: 1,425 MG EVERY 2 WEEKS IVPB
     Route: 042
     Dates: start: 20081222, end: 20090217
  3. ADRIAMYCIN PFS [Suspect]
     Indication: LYMPHOMA
     Dosage: 95 MG EVERY 2 WEEKS IVPB
     Route: 042
     Dates: start: 20081222, end: 20090217
  4. ONCOVIN [Suspect]
     Indication: LYMPHOMA
     Dosage: 2 MG EVERY 2 WEEKS IVPB
     Route: 042
     Dates: start: 20081222, end: 20090217
  5. PREDNISONE [Concomitant]
  6. COMPAZINE [Concomitant]
  7. ZOFRAN ODT [Concomitant]
  8. CIALIS [Concomitant]
  9. DESONIDE CREAM [Concomitant]
  10. AMOXIL [Concomitant]
  11. AMBIEN [Concomitant]

REACTIONS (2)
  - ATAXIA [None]
  - DIZZINESS [None]
